FAERS Safety Report 6736381-3 (Version None)
Quarter: 2010Q2

REPORT INFORMATION
  Report Type: 
  Country: None (occurrence: None)
  Receive Date: 20100521
  Receipt Date: 20100514
  Transmission Date: 20101027
  Serious: Yes (Other)
  Sender: FDA-Public Use
  Company Number: JP-MERCK-1005USA02587

PATIENT
  Age: 75 Year
  Sex: Female

DRUGS (9)
  1. JANUVIA [Suspect]
     Route: 048
     Dates: start: 20100202, end: 20100329
  2. ZYLORIC [Concomitant]
     Route: 048
  3. ASPIRIN [Concomitant]
     Route: 048
  4. CANDESARTAN CILEXETIL [Concomitant]
     Route: 048
  5. ZETIA [Concomitant]
     Route: 048
  6. VASOLAN [Concomitant]
     Route: 065
  7. PEPCID RPD [Concomitant]
     Route: 048
  8. LASIX [Concomitant]
     Route: 065
  9. CRESTOR [Concomitant]
     Route: 065

REACTIONS (1)
  - CARDIAC FAILURE [None]
